FAERS Safety Report 14759586 (Version 1)
Quarter: 2018Q2

REPORT INFORMATION
  Report Type: Spontaneous
  Country: US (occurrence: US)
  Receive Date: 20180413
  Receipt Date: 20180413
  Transmission Date: 20180711
  Serious: No
  Sender: FDA-Public Use
  Company Number: US-BAYER-2018-071818

PATIENT
  Age: 20 Year
  Sex: Female

DRUGS (1)
  1. EOVIST [Suspect]
     Active Substance: GADOXETATE DISODIUM
     Indication: NUCLEAR MAGNETIC RESONANCE IMAGING
     Dosage: UNK UNK, ONCE
     Dates: start: 20180410, end: 20180410

REACTIONS (4)
  - Nausea [None]
  - Dysphonia [None]
  - Vomiting [None]
  - Oropharyngeal discomfort [None]

NARRATIVE: CASE EVENT DATE: 20180410
